FAERS Safety Report 14017145 (Version 1)
Quarter: 2017Q3

REPORT INFORMATION
  Report Type: Spontaneous
  Country: US (occurrence: US)
  Receive Date: 20170927
  Receipt Date: 20170927
  Transmission Date: 20171128
  Serious: No
  Sender: FDA-Public Use
  Company Number: US-BIOGEN-2017BI00462270

PATIENT
  Sex: Female

DRUGS (1)
  1. TECFIDERA [Suspect]
     Active Substance: DIMETHYL FUMARATE
     Indication: MULTIPLE SCLEROSIS
     Route: 065
     Dates: start: 20160608

REACTIONS (6)
  - Visual impairment [Unknown]
  - Headache [Unknown]
  - Vomiting [Unknown]
  - Hypoaesthesia [Unknown]
  - Hypersomnia [Unknown]
  - Nausea [Unknown]
